FAERS Safety Report 5406078-0 (Version None)
Quarter: 2007Q3

REPORT INFORMATION
  Report Type: 
  Country: None (occurrence: None)
  Receive Date: 20070806
  Receipt Date: 20070723
  Transmission Date: 20080115
  Serious: Yes (Other)
  Sender: FDA-Public Use
  Company Number: NO-ASTRAZENECA-2007SE04110

PATIENT
  Age: 26850 Day
  Sex: Male

DRUGS (4)
  1. ESOMEPRAZOLE MAGNESIUM [Suspect]
     Indication: PEPTIC ULCER HAEMORRHAGE
     Route: 042
     Dates: start: 20070718
  2. METFORMIN HCL [Concomitant]
     Indication: DIABETES MELLITUS
     Route: 048
  3. NAPROXEN [Concomitant]
     Indication: GOUTY ARTHRITIS
     Route: 048
     Dates: end: 20070718
  4. ALLOPURINOL [Concomitant]
     Indication: GOUTY ARTHRITIS
     Dates: start: 20070719

REACTIONS (1)
  - ACUTE PSYCHOSIS [None]
